FAERS Safety Report 4969002-0 (Version None)
Quarter: 2006Q2

REPORT INFORMATION
  Report Type: 
  Country: None (occurrence: None)
  Receive Date: 20060411
  Receipt Date: 20060301
  Transmission Date: 20061013
  Serious: Yes (Hospitalization)
  Sender: FDA-Public Use
  Company Number: US-MERCK-0603USA00421

PATIENT
  Age: 60 Year
  Sex: Female
  Weight: 45 kg

DRUGS (2)
  1. VIOXX [Suspect]
     Indication: ARTHRALGIA
     Route: 048
     Dates: start: 20000201, end: 20040901
  2. VIOXX [Suspect]
     Indication: BONE PAIN
     Route: 048
     Dates: start: 20000201, end: 20040901

REACTIONS (6)
  - CARDIAC DISORDER [None]
  - CARDIAC FAILURE CONGESTIVE [None]
  - CONGESTIVE CARDIOMYOPATHY [None]
  - METASTASES TO LUNG [None]
  - OBSTRUCTIVE CHRONIC BRONCHITIS WITH ACUTE EXACERBATION [None]
  - THROMBOSIS [None]
